FAERS Safety Report 4668192-7 (Version None)
Quarter: 2005Q2

REPORT INFORMATION
  Report Type: 
  Country: None (occurrence: None)
  Receive Date: 20050523
  Receipt Date: 20050121
  Transmission Date: 20051028
  Serious: Yes (Other)
  Sender: FDA-Public Use
  Company Number: PHEH2005US01171

PATIENT
  Age: 65 Year
  Sex: Female

DRUGS (9)
  1. ZOMETA [Suspect]
     Indication: BREAST CANCER METASTATIC
     Dosage: 4 MG EVERY 4 WEEKS
     Dates: start: 20020830, end: 20041221
  2. FASLODEX [Concomitant]
  3. TAMOXIFEN [Concomitant]
  4. CYTOXAN [Concomitant]
  5. METHOTREXATE [Concomitant]
  6. FLUOROURACIL [Concomitant]
  7. TAXOTERE [Concomitant]
  8. DECADRON                                /CAN/ [Concomitant]
  9. GLUCOVANCE [Concomitant]

REACTIONS (4)
  - INCISIONAL DRAINAGE [None]
  - OPEN WOUND [None]
  - OSTEONECROSIS [None]
  - TOOTH EXTRACTION [None]
